FAERS Safety Report 21986784 (Version 2)
Quarter: 2023Q1

REPORT INFORMATION
  Report Type: Spontaneous
  Country: CZ (occurrence: CZ)
  Receive Date: 20230213
  Receipt Date: 20230221
  Transmission Date: 20230418
  Serious: Yes (Hospitalization)
  Sender: FDA-Public Use
  Company Number: CZ-Accord-296556

PATIENT
  Age: 69 Year
  Sex: Male
  Weight: 79 kg

DRUGS (25)
  1. OXALIPLATIN [Suspect]
     Active Substance: OXALIPLATIN
     Indication: Product used for unknown indication
     Dosage: 100 MILLIGRAM/SQ. METER, 1Q2W
     Route: 065
     Dates: start: 20221122, end: 20221213
  2. GEMCITABINE [Suspect]
     Active Substance: GEMCITABINE
     Indication: Product used for unknown indication
     Dosage: 2000 MILLIGRAM/SQ. METER, 1Q2W
     Route: 065
     Dates: start: 20221122, end: 20221122
  3. GEMCITABINE [Suspect]
     Active Substance: GEMCITABINE
     Dosage: 1000 MILLIGRAM/SQ. METER, 1Q2W
     Route: 065
     Dates: start: 20221213, end: 20221213
  4. EPCORITAMAB [Suspect]
     Active Substance: EPCORITAMAB
     Indication: Product used for unknown indication
     Dosage: 0.16 MILLIGRAM, PRIMING DOSE, SINGLE
     Route: 058
     Dates: start: 20221122, end: 20221122
  5. EPCORITAMAB [Suspect]
     Active Substance: EPCORITAMAB
     Dosage: 0.8 MILLIGRAM, INTERMEDIATE DOSE, SINGLE
     Route: 058
     Dates: start: 20221129, end: 20221129
  6. EPCORITAMAB [Suspect]
     Active Substance: EPCORITAMAB
     Dosage: 0.16 MILLIGRAM, RE-PRIMING DOSE, SINGLE
     Route: 058
     Dates: start: 20221213, end: 20221213
  7. EPCORITAMAB [Suspect]
     Active Substance: EPCORITAMAB
     Dosage: 0.8 MILLIGRAM, RE PRIMING DOSE, SINGLE
     Route: 058
     Dates: start: 20221220, end: 20221220
  8. ACETAMINOPHEN [Concomitant]
     Active Substance: ACETAMINOPHEN
     Dosage: 1000 MILLIGRAM
     Route: 048
     Dates: start: 20221213, end: 20221213
  9. ACETAMINOPHEN [Concomitant]
     Active Substance: ACETAMINOPHEN
     Dosage: 1000 MILLIGRAM
     Route: 048
     Dates: start: 20221220, end: 20221220
  10. MAGNESIUM LACTATE [Concomitant]
     Active Substance: MAGNESIUM LACTATE
     Dosage: UNK
     Route: 065
  11. POTASSIUM CHLORIDE [Concomitant]
     Active Substance: POTASSIUM CHLORIDE
     Dosage: UNK
     Route: 065
     Dates: start: 2021
  12. PROPAFENONE [Concomitant]
     Active Substance: PROPAFENONE
     Dosage: UNK
     Route: 065
     Dates: start: 201612
  13. LACTULOSE [Concomitant]
     Active Substance: LACTULOSE
     Dosage: UNK
     Route: 065
  14. FILGRASTIM [Concomitant]
     Active Substance: FILGRASTIM
     Dosage: UNK
     Route: 065
     Dates: start: 20221205, end: 20221207
  15. BISOPROLOL FUMARATE [Concomitant]
     Active Substance: BISOPROLOL FUMARATE
     Dosage: UNK
     Route: 065
     Dates: start: 2020
  16. ALLOPURINOL [Concomitant]
     Active Substance: ALLOPURINOL
     Dosage: UNK
     Route: 065
     Dates: start: 2021, end: 20221207
  17. BISULEPIN [Concomitant]
     Active Substance: BISULEPIN
     Dosage: 1 MILLIGRAM
     Route: 065
     Dates: start: 20221213, end: 20221213
  18. BISULEPIN [Concomitant]
     Active Substance: BISULEPIN
     Dosage: 100 MILLIGRAM
     Route: 065
     Dates: start: 20221220, end: 20221220
  19. FENTANYL [Concomitant]
     Active Substance: FENTANYL
     Dosage: UNK
     Route: 065
     Dates: start: 2021
  20. TRAZODONE HYDROCHLORIDE [Concomitant]
     Active Substance: TRAZODONE HYDROCHLORIDE
     Dosage: UNK
     Route: 065
     Dates: start: 2022
  21. PREDNISONE [Concomitant]
     Active Substance: PREDNISONE
     Dosage: 20 MILLIGRAM
     Route: 048
     Dates: start: 20221122, end: 20221125
  22. PREDNISONE [Concomitant]
     Active Substance: PREDNISONE
     Dosage: 100 MILLIGRAM
     Route: 048
     Dates: start: 20221122, end: 20221125
  23. PREDNISONE [Concomitant]
     Active Substance: PREDNISONE
     Dosage: 20 MILLIGRAM
     Route: 048
     Dates: start: 20221213, end: 20221216
  24. PREDNISONE [Concomitant]
     Active Substance: PREDNISONE
     Dosage: 100 MILLIGRAM
     Route: 048
     Dates: start: 20221213, end: 20221216
  25. PREDNISONE [Concomitant]
     Active Substance: PREDNISONE
     Dosage: 100 MILLIGRAM
     Route: 048
     Dates: start: 20221220, end: 20221223

REACTIONS (1)
  - Cytokine release syndrome [Recovered/Resolved]

NARRATIVE: CASE EVENT DATE: 20221228
